FAERS Safety Report 9144754 (Version 1)
Quarter: 2013Q1

REPORT INFORMATION
  Report Type: Spontaneous
  Country: US (occurrence: US)
  Receive Date: 20130306
  Receipt Date: 20130306
  Transmission Date: 20140127
  Serious: No
  Sender: FDA-Public Use
  Company Number: US-ASTRAZENECA-2013SE05902

PATIENT
  Age: 55 Year
  Sex: Male
  Weight: 86.2 kg

DRUGS (9)
  1. PRILOSEC [Suspect]
     Indication: GASTROOESOPHAGEAL REFLUX DISEASE
     Route: 048
     Dates: end: 2011
  2. VYSTOLIC [Concomitant]
  3. LOVASA [Concomitant]
  4. LIVALO [Concomitant]
  5. PHENERGAN [Concomitant]
  6. OXYCONTIN [Concomitant]
  7. XANAX [Concomitant]
  8. PREDNISONE [Concomitant]
  9. OXYCODONE [Concomitant]

REACTIONS (8)
  - Gastrooesophageal reflux disease [Recovered/Resolved]
  - Haemorrhoids [Not Recovered/Not Resolved]
  - Blood glucose decreased [Not Recovered/Not Resolved]
  - Hypertension [Not Recovered/Not Resolved]
  - Limb discomfort [Not Recovered/Not Resolved]
  - Hyperchlorhydria [Not Recovered/Not Resolved]
  - Malaise [Recovered/Resolved]
  - Drug ineffective [Unknown]
